FAERS Safety Report 9522246 (Version 2)
Quarter: 2013Q3

REPORT INFORMATION
  Report Type: Report from Study
  Country: JP (occurrence: JP)
  Receive Date: 20130913
  Receipt Date: 20130930
  Transmission Date: 20140515
  Serious: Yes (Death)
  Sender: FDA-Public Use
  Company Number: JP-SHIRE-ALL1-2013-06179

PATIENT
  Age: 13 Year
  Sex: Male

DRUGS (2)
  1. IDURSULFASE [Suspect]
     Indication: MUCOPOLYSACCHARIDOSIS II
     Dosage: 12 MG, OTHER(BIWEEKLY)
     Route: 041
     Dates: start: 20090619
  2. IDURSULFASE [Suspect]
     Dosage: 12 MG, OTHER( BIWEEKLY)

REACTIONS (2)
  - Asphyxia [Fatal]
  - Foreign body aspiration [Fatal]
